FAERS Safety Report 18115534 (Version 1)
Quarter: 2020Q3

REPORT INFORMATION
  Report Type: Spontaneous
  Country: US (occurrence: US)
  Receive Date: 20200805
  Receipt Date: 20200805
  Transmission Date: 20201103
  Serious: No
  Sender: FDA-Public Use
  Company Number: US-TEVA-2020-US-1810306

PATIENT
  Age: 85 Year
  Sex: Female

DRUGS (2)
  1. PENICILLIN V POTASSIUM. [Suspect]
     Active Substance: PENICILLIN V POTASSIUM
     Indication: URINARY TRACT INFECTION
     Route: 065
  2. ATENOLOL TEVA [Concomitant]
     Active Substance: ATENOLOL
     Dosage: 25 MG

REACTIONS (3)
  - Wrong technique in product usage process [Unknown]
  - Product odour abnormal [Unknown]
  - Drug hypersensitivity [Unknown]
